FAERS Safety Report 5493668-2 (Version None)
Quarter: 2007Q4

REPORT INFORMATION
  Report Type: 
  Country: None (occurrence: None)
  Receive Date: 20071015
  Receipt Date: 20070830
  Transmission Date: 20080405
  Serious: No
  Sender: FDA-Public Use
  Company Number: 2007SP003057

PATIENT
  Age: 47 Year
  Sex: Female
  Weight: 75.7507 kg

DRUGS (7)
  1. LUNESTA [Suspect]
     Indication: INSOMNIA
     Dosage: 3 MG; 1X; ORAL
     Route: 048
     Dates: start: 20070830, end: 20070830
  2. DETROL [Concomitant]
  3. NIASPAN [Concomitant]
  4. VITAMINS [Concomitant]
  5. VYTORIN [Concomitant]
  6. TYLENOL [Concomitant]
  7. AMBIEN [Concomitant]

REACTIONS (5)
  - ABDOMINAL PAIN UPPER [None]
  - DIARRHOEA [None]
  - DYSGEUSIA [None]
  - HEADACHE [None]
  - INITIAL INSOMNIA [None]
